FAERS Safety Report 16863841 (Version 1)
Quarter: 2019Q3

REPORT INFORMATION
  Report Type: Spontaneous
  Country: PH (occurrence: PH)
  Receive Date: 20190927
  Receipt Date: 20190927
  Transmission Date: 20191005
  Serious: Yes (Hospitalization)
  Sender: FDA-Public Use
  Company Number: PH-GE HEALTHCARE LIFE SCIENCES-2019CSU004919

PATIENT

DRUGS (4)
  1. VISIPAQUE [Suspect]
     Active Substance: IODIXANOL
     Indication: DIVERTICULITIS
  2. VISIPAQUE [Suspect]
     Active Substance: IODIXANOL
     Indication: APPENDICITIS
  3. VISIPAQUE [Suspect]
     Active Substance: IODIXANOL
     Indication: COMPUTERISED TOMOGRAM ABDOMEN
     Dosage: 100 ML, SINGLE
     Route: 042
     Dates: start: 20190920, end: 20190920
  4. VISIPAQUE [Suspect]
     Active Substance: IODIXANOL
     Indication: ACUTE ABDOMEN

REACTIONS (5)
  - Piloerection [Recovered/Resolved]
  - Blood pressure decreased [Unknown]
  - Seizure [Recovered/Resolved]
  - Erythema [Recovered/Resolved]
  - Hypoaesthesia [Recovered/Resolved]

NARRATIVE: CASE EVENT DATE: 20190920
